FAERS Safety Report 7092006-1 (Version None)
Quarter: 2010Q4

REPORT INFORMATION
  Report Type: 
  Country: None (occurrence: None)
  Receive Date: 20101101
  Receipt Date: 20101020
  Transmission Date: 20110411
  Serious: Yes (Hospitalization)
  Sender: FDA-Public Use
  Company Number: MPS1-1000384

PATIENT
  Age: 19 Year
  Sex: Female
  Weight: 61.2 kg

DRUGS (2)
  1. ALDURAZYME [Suspect]
     Indication: MUCOPOLYSACCHARIDOSIS I
     Dosage: 31.9 KG, 1X/W, INTRAVENOUS
     Route: 042
     Dates: start: 20030614
  2. ADVIL LIQUI-GELS [Concomitant]

REACTIONS (1)
  - CARDIAC VALVE DISEASE [None]
